FAERS Safety Report 8739528 (Version 8)
Quarter: 2014Q1

REPORT INFORMATION
  Report Type: Report from Study
  Country: BR (occurrence: BR)
  Receive Date: 20120823
  Receipt Date: 20140124
  Transmission Date: 20141002
  Serious: Yes (Hospitalization)
  Sender: FDA-Public Use
  Company Number: BR-ROCHE-1103189

PATIENT
  Age: 72 Year
  Sex: Female
  Weight: 68 kg

DRUGS (14)
  1. ACTEMRA [Suspect]
     Indication: RHEUMATOID ARTHRITIS
     Dosage: LATEST INFUSION ON 01/JAN/2014
     Route: 042
     Dates: start: 20120712
  2. MABTHERA [Suspect]
     Indication: RHEUMATOID ARTHRITIS
     Route: 065
  3. ORENCIA [Suspect]
     Indication: RHEUMATOID ARTHRITIS
     Route: 065
  4. EUTHYROX [Suspect]
     Indication: THYROID DISORDER
     Route: 065
  5. GRAVIOLA [Concomitant]
  6. ALOE VERA [Concomitant]
  7. MAGNESIUM CHLORIDE [Concomitant]
  8. NAPROXEN [Concomitant]
     Indication: PAIN
     Route: 065
  9. PANTOPRAZOLE [Concomitant]
  10. LOSARTAN [Concomitant]
  11. OMEGA-3 [Concomitant]
  12. ALPRAZOLAM [Concomitant]
  13. ARADOIS [Concomitant]
     Indication: HYPERTENSION
     Route: 065
  14. OSTEONUTRI [Concomitant]
     Dosage: 600MG CALCIUM AND 200 MG VITAMIN D
     Route: 065

REACTIONS (24)
  - Arthropathy [Unknown]
  - Arthropathy [Unknown]
  - Spinal disorder [Unknown]
  - Ill-defined disorder [Unknown]
  - Ill-defined disorder [Not Recovered/Not Resolved]
  - Shoulder arthroplasty [Unknown]
  - Cataract [Unknown]
  - Musculoskeletal disorder [Not Recovered/Not Resolved]
  - Pain in extremity [Not Recovered/Not Resolved]
  - Drug ineffective [Unknown]
  - Pain [Unknown]
  - Dysstasia [Not Recovered/Not Resolved]
  - Abdominal pain [Not Recovered/Not Resolved]
  - Fall [Unknown]
  - Head injury [Unknown]
  - Joint injury [Unknown]
  - Joint swelling [Unknown]
  - Headache [Unknown]
  - Head injury [Unknown]
  - Balance disorder [Unknown]
  - Haematoma [Not Recovered/Not Resolved]
  - Decubitus ulcer [Not Recovered/Not Resolved]
  - Rheumatoid arthritis [Not Recovered/Not Resolved]
  - Varicose vein [Not Recovered/Not Resolved]
